FAERS Safety Report 16211597 (Version 1)
Quarter: 2019Q2

REPORT INFORMATION
  Report Type: Spontaneous
  Country: US (occurrence: US)
  Receive Date: 20190417
  Receipt Date: 20190417
  Transmission Date: 20190711
  Serious: No
  Sender: FDA-Public Use
  Company Number: None

PATIENT
  Sex: Male

DRUGS (1)
  1. MODAFINIL 100MG TABLETS [Suspect]
     Active Substance: MODAFINIL

REACTIONS (1)
  - Death [None]
